FAERS Safety Report 12144131 (Version 1)
Quarter: 2016Q1

REPORT INFORMATION
  Report Type: Other
  Country: GB (occurrence: GB)
  Receive Date: 20160304
  Receipt Date: 20160304
  Transmission Date: 20160526
  Serious: Yes (Disabling)
  Sender: FDA-Public Use
  Company Number: GB-GLENMARK PHARMACEUTICALS INC, USA.-2016GMK022198

PATIENT

DRUGS (1)
  1. TOPIRAMATE. [Suspect]
     Active Substance: TOPIRAMATE
     Indication: MIGRAINE
     Dosage: 25 MG, OD
     Route: 048
     Dates: start: 20160217, end: 20160218

REACTIONS (4)
  - Depressed mood [Recovered/Resolved]
  - Somnolence [Unknown]
  - Suicidal ideation [Recovered/Resolved]
  - Tearfulness [Unknown]

NARRATIVE: CASE EVENT DATE: 20160217
